FAERS Safety Report 7170626-3 (Version None)
Quarter: 2010Q4

REPORT INFORMATION
  Report Type: 
  Country: None (occurrence: None)
  Receive Date: 20101217
  Receipt Date: 20101215
  Transmission Date: 20110411
  Serious: Yes (Hospitalization)
  Sender: FDA-Public Use
  Company Number: A0899966A

PATIENT
  Age: 63 Year
  Sex: Female

DRUGS (16)
  1. MELPHALAN [Suspect]
     Indication: MULTIPLE MYELOMA
     Route: 042
     Dates: start: 20100524, end: 20100525
  2. VELCADE [Suspect]
     Indication: MULTIPLE MYELOMA
     Route: 042
     Dates: start: 20100525
  3. NEUPOGEN [Concomitant]
  4. ACYCLOVIR SODIUM [Concomitant]
  5. WELLBUTRIN [Concomitant]
  6. FLUCONAZOLE [Concomitant]
  7. SYNTHROID [Concomitant]
  8. PRILOSEC [Concomitant]
  9. CEFEPIME [Concomitant]
  10. COMPAZINE [Concomitant]
  11. ZOLOFT [Concomitant]
  12. VANCOMYCIN [Concomitant]
  13. XANAX [Concomitant]
  14. ATIVAN [Concomitant]
  15. ZOFRAN [Concomitant]
  16. OXYCODONE HCL [Concomitant]

REACTIONS (5)
  - ATRIAL FIBRILLATION [None]
  - DISORIENTATION [None]
  - DYSPNOEA [None]
  - FATIGUE [None]
  - PULMONARY OEDEMA [None]
